FAERS Safety Report 7589016-4 (Version None)
Quarter: 2011Q3

REPORT INFORMATION
  Report Type: 
  Country: None (occurrence: None)
  Receive Date: 20110705
  Receipt Date: 20110614
  Transmission Date: 20111222
  Serious: Yes (Hospitalization, Other)
  Sender: FDA-Public Use
  Company Number: US-BAYER-201026712NA

PATIENT
  Age: 28 Year
  Sex: Female
  Weight: 54.545 kg

DRUGS (4)
  1. TYLENOL-500 [Concomitant]
  2. YAZ [Suspect]
     Indication: CONTRACEPTION
     Route: 048
     Dates: start: 20011001, end: 20071201
  3. IBUPROFEN [Concomitant]
  4. TORADOL [Concomitant]
     Indication: DYSMENORRHOEA
     Dosage: 10 MG (DAILY DOSE), PRN,

REACTIONS (7)
  - CHOLECYSTITIS ACUTE [None]
  - PANCREATITIS [None]
  - PAIN [None]
  - PANCREATIC ENZYMES INCREASED [None]
  - CHOLELITHIASIS [None]
  - DRUG DEPENDENCE [None]
  - SPHINCTER OF ODDI DYSFUNCTION [None]
